FAERS Safety Report 25668401 (Version 2)
Quarter: 2025Q3

REPORT INFORMATION
  Report Type: Report from Study
  Country: US (occurrence: US)
  Receive Date: 20250812
  Receipt Date: 20250829
  Transmission Date: 20251020
  Serious: Yes (Other)
  Sender: UCB
  Company Number: US-UCBSA-2025048994

PATIENT
  Age: 21 Year
  Sex: Female
  Weight: 58.3 kg

DRUGS (3)
  1. FINTEPLA [Suspect]
     Active Substance: FENFLURAMINE
     Indication: Lennox-Gastaut syndrome
     Dosage: 4 MILLILITER, 2X/DAY (BID)
     Dates: start: 20210605
  2. FINTEPLA [Suspect]
     Active Substance: FENFLURAMINE
  3. BRIVIACT [Suspect]
     Active Substance: BRIVARACETAM
     Indication: Product used for unknown indication

REACTIONS (3)
  - Generalised tonic-clonic seizure [Recovered/Resolved]
  - Headache [Recovered/Resolved]
  - Product dose omission issue [Unknown]

NARRATIVE: CASE EVENT DATE: 20250804
